FAERS Safety Report 25535245 (Version 1)
Quarter: 2025Q3

REPORT INFORMATION
  Report Type: Spontaneous
  Country: US (occurrence: US)
  Receive Date: 20250709
  Receipt Date: 20250709
  Transmission Date: 20251021
  Serious: Yes (Hospitalization, Other)
  Sender: GALPHARM INTERNATIONAL
  Company Number: US-PERRIGO-25US008078

PATIENT
  Sex: Female

DRUGS (1)
  1. OPILL [Suspect]
     Active Substance: NORGESTREL
     Indication: Product used for unknown indication
     Route: 048
     Dates: start: 202501

REACTIONS (3)
  - Cyst [Unknown]
  - Cyst rupture [Unknown]
  - Alopecia [Unknown]
